FAERS Safety Report 9664290 (Version 1)
Quarter: 2013Q4

REPORT INFORMATION
  Report Type: Report from Study
  Country: PE (occurrence: PE)
  Receive Date: 20131101
  Receipt Date: 20131101
  Transmission Date: 20140711
  Serious: Yes (Disabling)
  Sender: FDA-Public Use
  Company Number: PE-ASTRAZENECA-2013SE79837

PATIENT
  Age: 24778 Day
  Sex: Male

DRUGS (7)
  1. AZD6140 [Suspect]
     Indication: CORONARY ARTERY DISEASE
     Route: 048
     Dates: start: 20120723, end: 20120925
  2. AZD6140 [Suspect]
     Indication: CORONARY ARTERY DISEASE
     Route: 048
     Dates: start: 20121012, end: 20130517
  3. AZD6140 [Suspect]
     Indication: CORONARY ARTERY DISEASE
     Route: 048
     Dates: start: 20130605, end: 20130712
  4. ASA [Concomitant]
     Route: 048
     Dates: start: 20120314, end: 20121003
  5. ASA [Concomitant]
     Route: 048
     Dates: start: 20121012
  6. ATORVASTATIN [Concomitant]
     Indication: CORONARY ARTERY DISEASE
     Route: 048
     Dates: start: 20100712
  7. ENALAPRIL [Concomitant]
     Indication: CORONARY ARTERY DISEASE
     Route: 048
     Dates: start: 20100704

REACTIONS (1)
  - Intervertebral disc protrusion [Not Recovered/Not Resolved]
